FAERS Safety Report 5760402-8 (Version None)
Quarter: 2008Q2

REPORT INFORMATION
  Report Type: 
  Country: None (occurrence: None)
  Receive Date: 20080605
  Receipt Date: 20080526
  Transmission Date: 20081010
  Serious: Yes (Other)
  Sender: FDA-Public Use
  Company Number: JP-PFIZER INC-2008033524

PATIENT
  Age: 85 Year
  Sex: Male

DRUGS (14)
  1. CELECOX [Suspect]
     Indication: OSTEOARTHRITIS
     Route: 048
     Dates: start: 20080327, end: 20080410
  2. OPALMON [Concomitant]
     Indication: SPINAL COLUMN STENOSIS
     Route: 048
  3. MITIGLINIDE [Concomitant]
     Indication: DIABETES MELLITUS
     Route: 048
     Dates: start: 20040520
  4. ALUMINIUM HYDROXIDE W/ MAGNESIUM HYDROXIDE [Concomitant]
     Indication: GASTRITIS
     Route: 048
     Dates: start: 20061219
  5. RABEPRAZOLE SODIUM [Concomitant]
     Indication: REFLUX OESOPHAGITIS
     Route: 048
     Dates: start: 20061219
  6. VASOLAN [Concomitant]
     Indication: SUPRAVENTRICULAR TACHYCARDIA
     Route: 048
     Dates: start: 20030127
  7. RIZABEN [Concomitant]
     Indication: HYPERTROPHIC SCAR
     Route: 048
     Dates: start: 20020613
  8. NU LOTAN [Concomitant]
     Indication: HYPERTENSION
     Route: 048
     Dates: start: 20020502
  9. FLUITRAN [Concomitant]
     Indication: HYPERTENSION
     Route: 048
     Dates: start: 20020502
  10. PERSELIN [Concomitant]
     Indication: BENIGN PROSTATIC HYPERPLASIA
     Route: 048
     Dates: start: 20020502
  11. NITRODERM [Concomitant]
     Indication: ANGINA PECTORIS
     Dates: start: 20071017
  12. KETOPROFEN [Concomitant]
     Indication: SPINAL COLUMN STENOSIS
     Dates: start: 20030210
  13. KETOPROFEN [Concomitant]
     Indication: OSTEOARTHRITIS
  14. GENTACIN [Concomitant]
     Indication: SKIN INFECTION
     Dates: end: 20020613

REACTIONS (1)
  - ALTERED STATE OF CONSCIOUSNESS [None]
